FAERS Safety Report 12783281 (Version 1)
Quarter: 2016Q3

REPORT INFORMATION
  Report Type: Spontaneous
  Country: ES (occurrence: ES)
  Receive Date: 20160927
  Receipt Date: 20160927
  Transmission Date: 20161109
  Serious: Yes (Other)
  Sender: FDA-Public Use
  Company Number: ES-CIPLA LTD.-2016ES18531

PATIENT

DRUGS (10)
  1. DICLOFENAC [Suspect]
     Active Substance: DICLOFENAC
     Dosage: UNK
     Route: 065
  2. IBUPROFEN. [Suspect]
     Active Substance: IBUPROFEN
     Dosage: 5 MG, OVER EVERY 60 MINUTES A DAY
     Route: 065
  3. ASPIRIN. [Suspect]
     Active Substance: ASPIRIN
     Dosage: 100 MG (CUMULATIVE DOSE OF 300MG)
     Route: 065
  4. NAPROXEN. [Suspect]
     Active Substance: NAPROXEN
     Dosage: UNK
     Route: 065
  5. IBUPROFEN. [Suspect]
     Active Substance: IBUPROFEN
     Dosage: 50 MG, OVER EVERY 60 MINUTES A DAY
     Route: 065
  6. ASPIRIN. [Suspect]
     Active Substance: ASPIRIN
     Dosage: 50 MG (CUMULATIVE DOSE OF 300MG)
     Route: 065
  7. ASPIRIN. [Suspect]
     Active Substance: ASPIRIN
     Dosage: 150 MG, A WEEK LATER (CUMULATIVE DOSE OF 500MG)
     Route: 065
  8. ASPIRIN. [Suspect]
     Active Substance: ASPIRIN
     Dosage: 150 MG, A WEEK LATER (CUMULATIVE DOSE OF 500MG)
     Route: 065
  9. ASPIRIN. [Suspect]
     Active Substance: ASPIRIN
     Dosage: 150 MG (CUMULATIVE DOSE OF 300MG)
     Route: 065
  10. ASPIRIN. [Suspect]
     Active Substance: ASPIRIN
     Dosage: 500 MG, EVERY 8 H FOR 2 DAYS A WEEK LATER
     Route: 065

REACTIONS (1)
  - Anaphylactic shock [Unknown]
